FAERS Safety Report 8042793-0 (Version None)
Quarter: 2011Q4

REPORT INFORMATION
  Report Type: 
  Country: None (occurrence: None)
  Receive Date: 20111209
  Receipt Date: 20111128
  Transmission Date: 20120403
  Serious: Yes (Other)
  Sender: FDA-Public Use
  Company Number: SPV1-2011-00834

PATIENT
  Age: 8 Year
  Sex: Male

DRUGS (1)
  1. AMPHETAMINES [Suspect]
     Indication: PRODUCT USED FOR UNKNOWN INDICATION
     Dosage: 20 MG, 1X/DAY;QD

REACTIONS (3)
  - FATIGUE [None]
  - CONVULSION [None]
  - HEADACHE [None]
